FAERS Safety Report 5119582-X (Version None)
Quarter: 2006Q3

REPORT INFORMATION
  Report Type: 
  Country: None (occurrence: None)
  Receive Date: 20060929
  Receipt Date: 20060916
  Transmission Date: 20061208
  Serious: Yes (Death, Disabling, Other)
  Sender: FDA-Public Use
  Company Number: 2006112429

PATIENT
  Age: 73 Year
  Sex: Female

DRUGS (1)
  1. DETROL [Suspect]
     Dosage: (1 IN 1 D)

REACTIONS (1)
  - BLINDNESS [None]
